FAERS Safety Report 19092272 (Version 3)
Quarter: 2021Q2

REPORT INFORMATION
  Report Type: Spontaneous
  Country: US (occurrence: US)
  Receive Date: 20210405
  Receipt Date: 20210415
  Transmission Date: 20210717
  Serious: No
  Sender: FDA-Public Use
  Company Number: US-TRIS PHARMA, INC.-21US009356

PATIENT

DRUGS (2)
  1. DYANAVEL XR [Suspect]
     Active Substance: AMPHETAMINE
     Dosage: UNK
     Route: 048
     Dates: start: 201909
  2. DYANAVEL XR [Suspect]
     Active Substance: AMPHETAMINE
     Indication: ATTENTION DEFICIT HYPERACTIVITY DISORDER
     Dosage: 4 MILLILITER, QD
     Route: 048

REACTIONS (7)
  - Tongue disorder [Unknown]
  - Food interaction [Not Recovered/Not Resolved]
  - Hypophagia [Recovered/Resolved]
  - Food allergy [Not Recovered/Not Resolved]
  - Growth retardation [Recovering/Resolving]
  - Underweight [Recovering/Resolving]
  - Intentional dose omission [Unknown]

NARRATIVE: CASE EVENT DATE: 201909
